FAERS Safety Report 21224683 (Version 1)
Quarter: 2022Q3

REPORT INFORMATION
  Report Type: Spontaneous
  Country: US (occurrence: US)
  Receive Date: 20220817
  Receipt Date: 20220817
  Transmission Date: 20221026
  Serious: No
  Sender: FDA-Public Use
  Company Number: US-OTSUKA-2022_027674

PATIENT
  Sex: Female
  Weight: 90.72 kg

DRUGS (3)
  1. ABILIFY [Suspect]
     Active Substance: ARIPIPRAZOLE
     Indication: Schizophrenia
     Dosage: 15 MG; PATIENT TAKING 1.5 TABLETS OF THE 10 MG TABLETS
     Route: 065
     Dates: start: 20211028
  2. ARIPIPRAZOLE [Suspect]
     Active Substance: ARIPIPRAZOLE
     Indication: Schizophrenia
     Dosage: 15 MG; TAKES 1.5 TABLETS OF THE 10 MG
     Route: 065
  3. RISPERDAL [Suspect]
     Active Substance: RISPERIDONE
     Indication: Schizophrenia
     Dosage: 1 MG
     Route: 065
     Dates: end: 20211021

REACTIONS (7)
  - Insomnia [Unknown]
  - Affective disorder [Unknown]
  - Feeling abnormal [Unknown]
  - Weight increased [Unknown]
  - Insomnia [Unknown]
  - Drug ineffective [Unknown]
  - Wrong technique in product usage process [Unknown]
